FAERS Safety Report 24004868 (Version 6)
Quarter: 2025Q1

REPORT INFORMATION
  Report Type: Report from Study
  Country: US (occurrence: US)
  Receive Date: 20240624
  Receipt Date: 20250311
  Transmission Date: 20250409
  Serious: Yes (Hospitalization, Other)
  Sender: NOVARTIS
  Company Number: US-002147023-NVSC2024US068164

PATIENT
  Age: 46 Year
  Sex: Female

DRUGS (3)
  1. KESIMPTA [Suspect]
     Active Substance: OFATUMUMAB
     Indication: Multiple sclerosis
     Route: 058
     Dates: start: 20240312
  2. KESIMPTA [Suspect]
     Active Substance: OFATUMUMAB
     Dosage: 20 MG, QW
     Route: 058
     Dates: start: 20240316
  3. KESIMPTA [Suspect]
     Active Substance: OFATUMUMAB
     Dosage: 20 MG, QMO
     Route: 058
     Dates: start: 20240322

REACTIONS (7)
  - Bronchopulmonary aspergillosis [Unknown]
  - Immune system disorder [Unknown]
  - Pharyngitis streptococcal [Unknown]
  - Injection site bruising [Unknown]
  - Ear infection [Unknown]
  - Pyrexia [Unknown]
  - Bronchitis [Unknown]

NARRATIVE: CASE EVENT DATE: 20240315
